FAERS Safety Report 6645103-6 (Version None)
Quarter: 2010Q1

REPORT INFORMATION
  Report Type: 
  Country: None (occurrence: None)
  Receive Date: 20100322
  Receipt Date: 20100318
  Transmission Date: 20100710
  Serious: Yes (Other)
  Sender: FDA-Public Use
  Company Number: DE-WYE-G05779310

PATIENT
  Age: 50 Year
  Sex: Female

DRUGS (15)
  1. TYGACIL [Suspect]
     Indication: ABDOMINAL INFECTION
     Route: 042
     Dates: start: 20100129, end: 20100129
  2. TYGACIL [Suspect]
     Route: 042
     Dates: start: 20100130, end: 20100210
  3. AMLODIPINE [Concomitant]
     Dosage: 5 MG, FREQUENCY UNKNOWN
     Route: 048
  4. TORSEMIDE [Concomitant]
     Dosage: 10 MG, FREQUENCY UNKNOWN
     Route: 048
  5. CANDESARTAN CILEXETIL [Concomitant]
     Dosage: 16 MG, FREQUENCY UNKNOWN
     Route: 048
  6. HYDROCHLOROTHIAZIDE [Concomitant]
     Dosage: 12.5 MG, FREQUENCY UNKNOWN
     Route: 048
  7. FOSFOMYCIN [Concomitant]
     Dates: start: 20100201, end: 20100209
  8. OMEPRAZOLE [Concomitant]
     Dosage: 40 MG, FREQUENCY UNKNOWN
     Route: 048
  9. TARGIN [Concomitant]
     Dosage: 30 MG OXYCODON + 15 MG NALOXONE, FREQUENCY UNKNOWN
     Route: 048
  10. MAGNETRANS FORTE [Concomitant]
  11. ACETYLCYSTEINE [Concomitant]
     Dosage: 300 MG, FREQUENCY UNKNOWN
     Route: 048
  12. AMBROXOL [Concomitant]
  13. ZIENAM [Concomitant]
     Indication: ABDOMINAL INFECTION
     Route: 042
     Dates: start: 20100126, end: 20100129
  14. CLEXANE [Concomitant]
  15. BISOPROLOL [Concomitant]
     Dosage: 5 MG, FREQUENCY UNKNOWN
     Route: 048

REACTIONS (1)
  - DRUG INEFFECTIVE [None]
